FAERS Safety Report 10666018 (Version 1)
Quarter: 2014Q4

REPORT INFORMATION
  Report Type: Spontaneous
  Country: US (occurrence: None)
  Receive Date: 20141208
  Receipt Date: 20141208
  Transmission Date: 20150529
  Serious: No
  Sender: FDA-Public Use
  Company Number: 2014TUS006463

PATIENT
  Age: 62 Year
  Sex: Female

DRUGS (7)
  1. ASPIRIN (ACETYLSALICYLIC ACID) [Concomitant]
     Active Substance: ASPIRIN
  2. BRINTELLIX [Suspect]
     Active Substance: VORTIOXETINE HYDROBROMIDE
     Indication: BIPOLAR DISORDER
     Route: 048
     Dates: start: 20140625, end: 20140730
  3. TERIPARATIDE [Concomitant]
     Active Substance: TERIPARATIDE
  4. HYDROXYZINE (HYDROXYZINE) [Concomitant]
     Active Substance: HYDROXYZINE HYDROCHLORIDE
  5. HYDROCODONE (HYDROCODONE) [Concomitant]
     Active Substance: HYDROCODONE
  6. MELATONIN [Concomitant]
     Active Substance: MELATONIN
  7. LEVOTHYROXINE [Concomitant]
     Active Substance: LEVOTHYROXINE

REACTIONS (2)
  - Swelling face [None]
  - Urticaria [None]

NARRATIVE: CASE EVENT DATE: 20140714
